FAERS Safety Report 4714499-4 (Version None)
Quarter: 2005Q3

REPORT INFORMATION
  Report Type: 
  Country: None (occurrence: None)
  Receive Date: 20050714
  Receipt Date: 20050622
  Transmission Date: 20060218
  Serious: Yes (Other)
  Sender: FDA-Public Use
  Company Number: PHEH2005US07077

PATIENT
  Age: 60 Year
  Sex: Female

DRUGS (1)
  1. FEMARA [Suspect]
     Indication: BREAST CANCER
     Dosage: 2.5 MG, QD
     Route: 048
     Dates: start: 20040101

REACTIONS (10)
  - ANOREXIA [None]
  - CATARACT [None]
  - DIARRHOEA [None]
  - HYPOAESTHESIA [None]
  - INSOMNIA [None]
  - MACULAR DEGENERATION [None]
  - RASH [None]
  - VISION BLURRED [None]
  - VITREOUS DETACHMENT [None]
  - WEIGHT DECREASED [None]
